FAERS Safety Report 9496528 (Version 1)
Quarter: 2013Q3

REPORT INFORMATION
  Report Type: Spontaneous
  Country: CA (occurrence: None)
  Receive Date: 20130829
  Receipt Date: 20130829
  Transmission Date: 20140515
  Serious: Yes (Other)
  Sender: FDA-Public Use
  Company Number: US-A0002

PATIENT
  Age: 18 Year
  Sex: 0

DRUGS (1)
  1. FORMEPIZOLE [Suspect]
     Indication: ALCOHOL POISONING

REACTIONS (2)
  - Hypoglycaemia [None]
  - Alcohol poisoning [None]
